FAERS Safety Report 9111810 (Version 1)
Quarter: 2013Q1

REPORT INFORMATION
  Report Type: Spontaneous
  Country: US (occurrence: US)
  Receive Date: 20130219
  Receipt Date: 20130219
  Transmission Date: 20140127
  Serious: No
  Sender: FDA-Public Use
  Company Number: US-BRISTOL-MYERS SQUIBB COMPANY-16450280

PATIENT
  Age: 45 Year
  Sex: Female

DRUGS (1)
  1. ORENCIA [Suspect]
     Indication: RHEUMATOID ARTHRITIS
     Dosage: 1DF: DOSE STRENGTH IS 3 BOTTLES.LAST INFUSION 06MAR2012.
     Route: 042

REACTIONS (6)
  - Sinusitis [Unknown]
  - Tooth abscess [Unknown]
  - Bacterial infection [Unknown]
  - Headache [Unknown]
  - Migraine [Unknown]
  - Menstruation irregular [Unknown]
